FAERS Safety Report 6445149-7 (Version None)
Quarter: 2009Q4

REPORT INFORMATION
  Report Type: 
  Country: None (occurrence: None)
  Receive Date: 20091116
  Receipt Date: 20091116
  Transmission Date: 20100525
  Serious: Yes (Hospitalization)
  Sender: FDA-Public Use
  Company Number: None

PATIENT
  Age: 67 Year

DRUGS (2)
  1. CISPLATIN [Suspect]
     Indication: SMALL CELL LUNG CANCER METASTATIC
     Dosage: 114 MG ONCE IV
     Route: 042
     Dates: start: 20090731, end: 20090731
  2. ETOPOSIDE [Suspect]
     Dosage: 228 MG ONCE IV
     Route: 042
     Dates: start: 20090731, end: 20090731

REACTIONS (1)
  - OESOPHAGEAL CANDIDIASIS [None]
